FAERS Safety Report 22295661 (Version 1)
Quarter: 2023Q2

REPORT INFORMATION
  Report Type: Report from Study
  Country: US (occurrence: US)
  Receive Date: 20230508
  Receipt Date: 20230508
  Transmission Date: 20230721
  Serious: Yes (Disabling, Other)
  Sender: FDA-Public Use
  Company Number: US-HORIZON THERAPEUTICS-HZN-2022-000678

PATIENT

DRUGS (3)
  1. TEPEZZA [Suspect]
     Active Substance: TEPROTUMUMAB-TRBW
     Indication: Endocrine ophthalmopathy
     Dosage: 1ST INFUSION
     Route: 042
     Dates: start: 20210914
  2. TEPEZZA [Suspect]
     Active Substance: TEPROTUMUMAB-TRBW
     Dosage: 5TH INFUSION
     Route: 042
  3. TEPEZZA [Suspect]
     Active Substance: TEPROTUMUMAB-TRBW
     Dosage: 8TH INFUSION
     Route: 042
     Dates: start: 202203

REACTIONS (15)
  - Deafness permanent [Unknown]
  - Physical disability [Unknown]
  - Disability [Unknown]
  - Anxiety [Unknown]
  - Discomfort [Unknown]
  - Concomitant disease aggravated [Unknown]
  - Pain [Unknown]
  - Injury [Unknown]
  - Emotional distress [Unknown]
  - Impaired quality of life [Unknown]
  - Dry skin [Recovering/Resolving]
  - Muscle spasms [Recovering/Resolving]
  - Tinnitus [Unknown]
  - Economic problem [Unknown]
  - Product quality issue [Unknown]
